FAERS Safety Report 9249350 (Version 1)
Quarter: 2013Q2

REPORT INFORMATION
  Report Type: Spontaneous
  Country: US (occurrence: US)
  Receive Date: 20130423
  Receipt Date: 20130423
  Transmission Date: 20140414
  Serious: Yes (Other)
  Sender: FDA-Public Use
  Company Number: US-GLAXOSMITHKLINE-A0743573A

PATIENT
  Sex: Male

DRUGS (1)
  1. AVANDIA [Suspect]
     Indication: BLOOD GLUCOSE INCREASED
     Dosage: 8MG PER DAY
     Route: 048
     Dates: start: 2005, end: 200706

REACTIONS (3)
  - Heart injury [Not Recovered/Not Resolved]
  - Cardiac failure [Unknown]
  - Myocardial ischaemia [Unknown]
